FAERS Safety Report 16962157 (Version 1)
Quarter: 2019Q4

REPORT INFORMATION
  Report Type: Spontaneous
  Country: US (occurrence: US)
  Receive Date: 20190906
  Receipt Date: 20190906
  Transmission Date: 20200122
  Serious: Yes (Hospitalization)
  Sender: FDA-Public Use
  Company Number: None

PATIENT
  Age: 49 Year
  Sex: Male
  Weight: 80 kg

DRUGS (1)
  1. REMICADE [Suspect]
     Active Substance: INFLIXIMAB

REACTIONS (5)
  - Double stranded DNA antibody positive [None]
  - Pericarditis [None]
  - Adverse drug reaction [None]
  - Pericardial effusion [None]
  - Antinuclear antibody positive [None]

NARRATIVE: CASE EVENT DATE: 20190629
